FAERS Safety Report 16766566 (Version 1)
Quarter: 2019Q3

REPORT INFORMATION
  Report Type: Spontaneous
  Country: US (occurrence: US)
  Receive Date: 20190903
  Receipt Date: 20190903
  Transmission Date: 20191005
  Serious: No
  Sender: FDA-Public Use
  Company Number: US-PFIZER INC-2019366195

PATIENT
  Age: 47 Year
  Sex: Male

DRUGS (1)
  1. REVATIO [Suspect]
     Active Substance: SILDENAFIL CITRATE
     Dosage: 40 MG, 3X/DAY (2 TABLETS EVERY 8 HOURS)
     Route: 048
     Dates: start: 20190821

REACTIONS (3)
  - Hypertension [Unknown]
  - Off label use [Unknown]
  - Product use issue [Unknown]

NARRATIVE: CASE EVENT DATE: 20190821
